FAERS Safety Report 6590409-2 (Version None)
Quarter: 2010Q1

REPORT INFORMATION
  Report Type: 
  Country: None (occurrence: None)
  Receive Date: 20100219
  Receipt Date: 20100218
  Transmission Date: 20100710
  Serious: Yes (Other)
  Sender: FDA-Public Use
  Company Number: TH-ROCHE-681886

PATIENT
  Age: 45 Year
  Sex: Male

DRUGS (3)
  1. AVASTIN [Suspect]
     Route: 031
     Dates: start: 20090805
  2. AVASTIN [Suspect]
     Route: 031
     Dates: start: 20090909
  3. AVASTIN [Suspect]
     Route: 031

REACTIONS (2)
  - CORNEAL OEDEMA [None]
  - OCULAR HYPERAEMIA [None]
